FAERS Safety Report 7151364-X (Version None)
Quarter: 2010Q4

REPORT INFORMATION
  Report Type: 
  Country: None (occurrence: None)
  Receive Date: 20101210
  Receipt Date: 20101130
  Transmission Date: 20110411
  Serious: Yes (Other)
  Sender: FDA-Public Use
  Company Number: IT-JNJFOC-20101201117

PATIENT

DRUGS (3)
  1. INFLIXIMAB, RECOMBINANT [Suspect]
     Indication: PSORIASIS
     Dosage: WEEKS 0, 2, 6, THE  EVERY 8 WEEKS THEREAFTER
     Route: 042
  2. ANTIHISTAMINE [Concomitant]
     Indication: PREMEDICATION
  3. HYDROCORTISONE [Concomitant]
     Indication: PREMEDICATION

REACTIONS (1)
  - HERPES ZOSTER [None]
